FAERS Safety Report 5410831-7 (Version None)
Quarter: 2007Q3

REPORT INFORMATION
  Report Type: 
  Country: None (occurrence: None)
  Receive Date: 20070810
  Receipt Date: 20070801
  Transmission Date: 20080115
  Serious: Yes (Death)
  Sender: FDA-Public Use
  Company Number: US-JNJFOC-20070800475

PATIENT
  Age: 65 Year
  Sex: Female

DRUGS (8)
  1. DOXIL [Suspect]
     Indication: DRUG USE FOR UNKNOWN INDICATION
     Route: 042
  2. ENZASTAURIN [Concomitant]
     Indication: PERITONEAL CARCINOMA
     Route: 065
  3. COUMADIN [Concomitant]
     Route: 065
  4. SYNTHROID [Concomitant]
     Route: 065
  5. PRILOSEC [Concomitant]
     Route: 065
  6. ALDACTONE [Concomitant]
     Route: 065
  7. MULTI-VITAMIN [Concomitant]
     Route: 065
  8. LEVAQUIN [Concomitant]
     Route: 065

REACTIONS (1)
  - ASPIRATION [None]
